FAERS Safety Report 7542707-3 (Version None)
Quarter: 2011Q2

REPORT INFORMATION
  Report Type: 
  Country: None (occurrence: None)
  Receive Date: 20110613
  Receipt Date: 20110602
  Transmission Date: 20111010
  Serious: Yes (Hospitalization)
  Sender: FDA-Public Use
  Company Number: US-JNJFOC-20110406991

PATIENT
  Sex: Male
  Weight: 92.5 kg

DRUGS (5)
  1. ABIRATERONE ACETATE [Suspect]
     Indication: PROSTATE CANCER METASTATIC
     Dosage: CYCLES -3
     Route: 048
     Dates: start: 20110217, end: 20110414
  2. PREDNISONE [Suspect]
     Indication: PROSTATE CANCER METASTATIC
     Dosage: CYCLES 1-3
     Route: 048
     Dates: start: 20110217, end: 20110414
  3. PREDNISONE [Suspect]
     Route: 048
  4. ABIRATERONE ACETATE [Suspect]
     Route: 048
  5. PREDNISONE [Suspect]
     Dosage: CYCLE 4 DAY 1
     Route: 048

REACTIONS (1)
  - PERICARDIAL EFFUSION [None]
